FAERS Safety Report 10715710 (Version 1)
Quarter: 2015Q1

REPORT INFORMATION
  Report Type: Spontaneous
  Country: US (occurrence: None)
  Receive Date: 20150107
  Receipt Date: 20150107
  Transmission Date: 20150721
  Serious: Yes (Other)
  Sender: FDA-Public Use
  Company Number: FIK201400526

PATIENT
  Age: 51 Year
  Sex: Female
  Weight: 65.77 kg

DRUGS (1)
  1. DIPRIVAN [Suspect]
     Active Substance: PROPOFOL
     Indication: PRODUCT USED FOR UNKNOWN INDICATION
     Dosage: 150 MG, UNKNOWN , INTRAVENOUS DRIP
     Route: 041
     Dates: start: 20140205

REACTIONS (2)
  - Cough [None]
  - Retching [None]

NARRATIVE: CASE EVENT DATE: 20140205
